FAERS Safety Report 7017061-6 (Version None)
Quarter: 2010Q3

REPORT INFORMATION
  Report Type: 
  Country: None (occurrence: None)
  Receive Date: 20100927
  Receipt Date: 20100919
  Transmission Date: 20110219
  Serious: No
  Sender: FDA-Public Use
  Company Number: US-PFIZER INC-2010119755

PATIENT

DRUGS (2)
  1. VIAGRA [Suspect]
  2. TAMSULOSIN [Suspect]

REACTIONS (1)
  - DRUG INEFFECTIVE [None]
